FAERS Safety Report 11794916 (Version 2)
Quarter: 2016Q1

REPORT INFORMATION
  Report Type: Spontaneous
  Country: US (occurrence: US)
  Receive Date: 20151202
  Receipt Date: 20160111
  Transmission Date: 20160525
  Serious: Yes (Hospitalization, Other)
  Sender: FDA-Public Use
  Company Number: US-BAYER-2015-474694

PATIENT
  Age: 37 Year
  Sex: Female
  Weight: 60.77 kg

DRUGS (7)
  1. ALDOMET [Concomitant]
     Active Substance: METHYLDOPA
     Dosage: 250 MG, UNK
  2. MOTRIN [Concomitant]
     Active Substance: IBUPROFEN
     Dosage: UNK
     Dates: start: 20100622, end: 20100701
  3. MIRENA [Suspect]
     Active Substance: LEVONORGESTREL
     Indication: CONTRACEPTION
     Dosage: 20 MCG/24HR, CONT
     Route: 015
     Dates: start: 20100729, end: 20110419
  4. PRENATAL PLUS IRON [Concomitant]
     Active Substance: .ALPHA.-TOCOPHEROL ACETATE, DL-\.BETA.-CAROTENE\ASCORBIC ACID\CALCIUM CARBONATE\CHOLECALCIFEROL\CUPRIC OXIDE\CYANOCOBALAMIN\FERROUS FUMARATE\FOLIC ACID\NIACINAMIDE\PYRIDOXINE HYDROCHLORIDE\RIBOFLAVIN\THIAMINE MONONITRATE\VITAMIN A ACETATE\ZINC OXIDE
     Dosage: UNK UNK, QD
  5. NORCO [Concomitant]
     Active Substance: ACETAMINOPHEN\HYDROCODONE BITARTRATE
     Dosage: UNK UNK, PRN
     Dates: start: 20100622, end: 20100701
  6. TESSALON [Concomitant]
     Active Substance: BENZONATATE
     Indication: COUGH
     Dosage: UNK UNK, PRN
     Dates: start: 20100611, end: 20100711
  7. TUSSI-ORGANIDIN [CHLORPHENAMINE MALEATE,CODEINE PHOSPHATE,IODINATE [Concomitant]
     Indication: COUGH
     Dosage: UNK
     Dates: start: 20100622, end: 20110412

REACTIONS (6)
  - Genital haemorrhage [None]
  - Uterine perforation [None]
  - Amenorrhoea [Recovered/Resolved]
  - Pain [None]
  - Device issue [None]
  - Device use error [None]

NARRATIVE: CASE EVENT DATE: 2010
